FAERS Safety Report 10076208 (Version 2)
Quarter: 2014Q2

REPORT INFORMATION
  Report Type: Spontaneous
  Country: JP (occurrence: JP)
  Receive Date: 20140414
  Receipt Date: 20140529
  Transmission Date: 20141212
  Serious: Yes (Other)
  Sender: FDA-Public Use
  Company Number: PHHY2014JP045005

PATIENT
  Sex: Male

DRUGS (2)
  1. AFINITOR [Suspect]
     Indication: NEUROENDOCRINE TUMOUR
     Dosage: 5 MG, DAILY
     Route: 048
  2. AFINITOR [Suspect]
     Dosage: 2.5 MG, DAILY
     Route: 048

REACTIONS (1)
  - Intestinal obstruction [Recovered/Resolved]
